FAERS Safety Report 25993300 (Version 1)
Quarter: 2025Q4

REPORT INFORMATION
  Report Type: Spontaneous
  Country: CA (occurrence: CA)
  Receive Date: 20251104
  Receipt Date: 20251104
  Transmission Date: 20260117
  Serious: Yes (Other)
  Sender: KVK-TECH
  Company Number: CA-KVK-TECH, INC-20251000156

PATIENT
  Age: 52 Year
  Sex: Female

DRUGS (1)
  1. DESMOPRESSIN ACETATE [Suspect]
     Active Substance: DESMOPRESSIN ACETATE
     Indication: Diabetes insipidus
     Dosage: 0.1 MILLIGRAM, QD
     Route: 048

REACTIONS (2)
  - Acute kidney injury [Unknown]
  - Hyponatraemia [Unknown]
